FAERS Safety Report 20515841 (Version 2)
Quarter: 2022Q2

REPORT INFORMATION
  Report Type: Spontaneous
  Country: FR (occurrence: FR)
  Receive Date: 20220224
  Receipt Date: 20220412
  Transmission Date: 20220721
  Serious: Yes (Other)
  Sender: FDA-Public Use
  Company Number: FR-AFSSAPS-AVPO20220025

PATIENT
  Age: 22 Year
  Sex: Female

DRUGS (8)
  1. PREGABALIN [Suspect]
     Active Substance: PREGABALIN
     Indication: Product used for unknown indication
     Dosage: 100 MILLIGRAM, DAILY, 50MG MIDDAY, 50MG EVENING
     Route: 048
     Dates: start: 2021
  2. LITHIUM [Suspect]
     Active Substance: LITHIUM
     Indication: Product used for unknown indication
     Dosage: 250 MILLIGRAM, DAILY, 250MG IN THE EVENING
     Route: 048
     Dates: start: 2021
  3. ARIPIPRAZOLE [Suspect]
     Active Substance: ARIPIPRAZOLE
     Indication: Product used for unknown indication
     Dosage: 20 MILLIGRAM, DAILY, 2 X 10MG ONCE IN THE MORNING
     Route: 048
     Dates: start: 2021
  4. BUSPIRONE [Suspect]
     Active Substance: BUSPIRONE HYDROCHLORIDE
     Indication: Product used for unknown indication
     Dosage: 40 MILLIGRAM, DAILY, 10MG IN THE MORNING, 10MG AT NOON, 20MG IN THE EVENING
     Route: 048
     Dates: start: 2021
  5. PIPAMPERONE [Suspect]
     Active Substance: PIPAMPERONE
     Indication: Product used for unknown indication
     Dosage: 80 MILLIGRAM, DAILY, 20MG IN THE MORNING, 20MG IN THE AFTERNOON, 40MG IN THE EVENING
     Route: 048
     Dates: start: 2021
  6. COCAINE [Suspect]
     Active Substance: COCAINE
     Indication: Product used for unknown indication
     Dosage: UNKNOWN
     Route: 065
     Dates: start: 20210908, end: 20210908
  7. TRIMEPRAZINE [Suspect]
     Active Substance: TRIMEPRAZINE
     Indication: Product used for unknown indication
     Dosage: 20 MILLIGRAM, DAILY
     Route: 048
     Dates: start: 2021
  8. CLORAZEPATE DIPOTASSIUM [Suspect]
     Active Substance: CLORAZEPATE DIPOTASSIUM
     Indication: Product used for unknown indication
     Dosage: 50 MILLIGRAM, DAILY, 10MG IN THE MORNING, 10MG AT NOON, 20MG IN THE EVENING, 10MG AT BEDTIME
     Route: 048
     Dates: start: 2021

REACTIONS (3)
  - Drug abuse [Not Recovered/Not Resolved]
  - Depressed level of consciousness [Recovered/Resolved]
  - Anxiety [Recovered/Resolved]

NARRATIVE: CASE EVENT DATE: 20210908
